FAERS Safety Report 9638396 (Version 3)
Quarter: 2017Q1

REPORT INFORMATION
  Report Type: Spontaneous
  Country: JP (occurrence: JP)
  Receive Date: 20131022
  Receipt Date: 20170222
  Transmission Date: 20170429
  Serious: Yes (Other)
  Sender: FDA-Public Use
  Company Number: JP-ABBVIE-13P-087-1123983-00

PATIENT
  Age: 49 Year
  Sex: Female
  Weight: 50 kg

DRUGS (15)
  1. FENTANYL. [Concomitant]
     Active Substance: FENTANYL
     Indication: ANALGESIC THERAPY
     Route: 042
     Dates: start: 20130704, end: 20130704
  2. FENTANYL. [Concomitant]
     Active Substance: FENTANYL
     Route: 008
     Dates: start: 20130704, end: 20130705
  3. SEVOFLURANE. [Concomitant]
     Active Substance: SEVOFLURANE
     Indication: INDUCTION AND MAINTENANCE OF ANAESTHESIA
     Dosage: 1.5% TO 4%
     Route: 055
     Dates: start: 20130704, end: 20130704
  4. POPSCAINE 0.75% INJ.(LEVOBUPIVACAINE HYDROCHLORIDE) [Concomitant]
     Indication: ANALGESIC THERAPY
     Route: 008
     Dates: start: 20130704, end: 20130704
  5. XYLOCAINE [Concomitant]
     Active Substance: LIDOCAINE HYDROCHLORIDE
     Indication: ANALGESIC THERAPY
     Route: 008
     Dates: start: 20130704, end: 20130704
  6. ROCURONIUM BROMIDE (ESLAX) [Concomitant]
     Dosage: 25MG/H
     Route: 042
     Dates: start: 20130704, end: 20130704
  7. FENTANYL. [Concomitant]
     Active Substance: FENTANYL
     Route: 008
     Dates: start: 20130704, end: 20130705
  8. ROCURONIUM BROMIDE (ESLAX) [Concomitant]
     Indication: HYPOTONIA
     Dosage: 25MG/HR
     Route: 042
     Dates: start: 20130704, end: 20130704
  9. FLURBIPROFEN AXETIL (ROPION) [Concomitant]
     Indication: ANALGESIC THERAPY
     Route: 042
  10. METOCLOPRAMIDE (PRIMPERAN) [Concomitant]
     Indication: ANALGESIC THERAPY
     Route: 042
     Dates: start: 20130704, end: 20130704
  11. FENTANYL. [Concomitant]
     Active Substance: FENTANYL
     Indication: ANALGESIC THERAPY
     Dosage: ANALGESIC THERAPY
     Route: 008
     Dates: start: 20130704, end: 20130706
  12. PROPOFOL. [Concomitant]
     Active Substance: PROPOFOL
     Indication: INDUCTION OF ANAESTHESIA
     Route: 042
     Dates: start: 20130704, end: 20130704
  13. SUGAMMADEX SODIUM (BRIDION) [Concomitant]
     Indication: ANAESTHESIA REVERSAL
     Route: 042
     Dates: start: 20130704, end: 20130704
  14. LEVOBUPIVACAINE (POPSCAINE) [Suspect]
     Active Substance: LEVOBUPIVACAINE
     Indication: ANALGESIC THERAPY
     Dosage: POPSCAINE 0.25% INJECTION 25MG/10ML, 10MG/H
     Route: 008
     Dates: start: 20130704, end: 20130706
  15. DROPERIDOL. [Concomitant]
     Active Substance: DROPERIDOL
     Indication: ANTIEMETIC SUPPORTIVE CARE
     Route: 008
     Dates: start: 20130704, end: 20130706

REACTIONS (2)
  - Altered state of consciousness [Recovering/Resolving]
  - Toxicity to various agents [Unknown]

NARRATIVE: CASE EVENT DATE: 20130706
